FAERS Safety Report 7460082-X (Version None)
Quarter: 2011Q2

REPORT INFORMATION
  Report Type: 
  Country: None (occurrence: None)
  Receive Date: 20110505
  Receipt Date: 20110421
  Transmission Date: 20111010
  Serious: Yes (Hospitalization)
  Sender: FDA-Public Use
  Company Number: PHHY2011US28836

PATIENT
  Sex: Female
  Weight: 154 kg

DRUGS (12)
  1. ASPIRIN [Concomitant]
     Dosage: 81 MG, UNK
  2. LIPITOR [Concomitant]
  3. LANSOTRAZOLE [Concomitant]
  4. ZYRTEC [Concomitant]
  5. SERTALINE [Concomitant]
  6. BENADRYL [Concomitant]
  7. CENTRUM [Concomitant]
  8. METOPROLOL SUCCINATE [Concomitant]
     Dosage: 0.5 DF, PER DAY
  9. DIOVAN [Suspect]
     Indication: HYPERTENSION
     Dosage: 160 MG, PER DAY
     Route: 048
     Dates: start: 20060101
  10. DIOVAN [Suspect]
     Dosage: 80 MG, PER DAY
     Route: 048
  11. VITAMINS [Concomitant]
  12. PRENACID [Concomitant]
     Indication: GASTROOESOPHAGEAL REFLUX DISEASE
     Dosage: 1 DF, 15 MG
     Route: 048

REACTIONS (3)
  - ATELECTASIS [None]
  - COLLAPSE OF LUNG [None]
  - PNEUMONIA [None]
